FAERS Safety Report 5202869-X (Version None)
Quarter: 2006Q4

REPORT INFORMATION
  Report Type: 
  Country: None (occurrence: None)
  Receive Date: 20061016
  Receipt Date: 20060807
  Transmission Date: 20070319
  Serious: No
  Sender: FDA-Public Use
  Company Number: 2006SP002920

PATIENT
  Age: 78 Year
  Sex: Male
  Weight: 80.7403 kg

DRUGS (6)
  1. LUNESTA [Suspect]
     Indication: INSOMNIA
     Dosage: 3 MG; ORAL
     Route: 048
     Dates: start: 20060101, end: 20060804
  2. TAMSULOSIN HCL [Concomitant]
  3. ATORVASTATIN CALCIUM [Concomitant]
  4. WARFARIN SODIUM [Concomitant]
  5. WATER PILLS [Concomitant]
  6. POTASSIUM ACETATE [Concomitant]

REACTIONS (4)
  - DIZZINESS [None]
  - DRUG INEFFECTIVE [None]
  - IRRITABILITY [None]
  - MIDDLE INSOMNIA [None]
